FAERS Safety Report 25971255 (Version 1)
Quarter: 2025Q4

REPORT INFORMATION
  Report Type: Spontaneous
  Country: TW (occurrence: TW)
  Receive Date: 20251028
  Receipt Date: 20251028
  Transmission Date: 20260117
  Serious: Yes (Death, Other)
  Sender: PFIZER
  Company Number: TW-PFM-2025-05117

PATIENT
  Age: 76 Year
  Sex: Female

DRUGS (1)
  1. BRAFTOVI [Suspect]
     Active Substance: ENCORAFENIB
     Dosage: UNK
     Route: 048

REACTIONS (3)
  - Cerebral haemorrhage [Fatal]
  - Internal haemorrhage [Unknown]
  - Epistaxis [Unknown]
